FAERS Safety Report 15159087 (Version 5)
Quarter: 2023Q1

REPORT INFORMATION
  Report Type: Spontaneous
  Country: PT (occurrence: PT)
  Receive Date: 20180718
  Receipt Date: 20230313
  Transmission Date: 20230417
  Serious: Yes (Life-Threatening, Hospitalization, Other)
  Sender: FDA-Public Use
  Company Number: PT-BALDACCIPT-2018010

PATIENT
  Age: 90 Year
  Sex: Male

DRUGS (6)
  1. AMOXICILLIN\CLAVULANIC ACID [Suspect]
     Active Substance: AMOXICILLIN\CLAVULANIC ACID
     Indication: Urinary tract infection
     Dosage: UNK
     Route: 048
  2. AMOXICILLIN\CLAVULANIC ACID [Suspect]
     Active Substance: AMOXICILLIN\CLAVULANIC ACID
     Indication: Respiratory tract infection
     Dosage: 1DF, BID; Q12H (875 + 125MG 12H/12H, 8 DAYS)
     Route: 048
     Dates: start: 20150210
  3. AMOXICILLIN\CLAVULANIC ACID [Suspect]
     Active Substance: AMOXICILLIN\CLAVULANIC ACID
     Indication: Anuria
     Dosage: 1000MG, BID; Q12H (875 + 125MG 12H/12H, 8 DAYS)
     Route: 048
     Dates: start: 20150210, end: 20150218
  4. AMOXICILLIN\CLAVULANIC ACID [Suspect]
     Active Substance: AMOXICILLIN\CLAVULANIC ACID
     Dosage: QD,875 + 125 MG EVERY 12 HOURS
     Route: 048
     Dates: start: 20150210, end: 20150218
  5. CIPROFLOXACIN [Suspect]
     Active Substance: CIPROFLOXACIN
     Indication: Urinary tract infection
     Dosage: 500 MILLIGRAM, QD
     Route: 065
     Dates: start: 20150106
  6. CIPROFLOXACIN [Suspect]
     Active Substance: CIPROFLOXACIN
     Indication: Respiratory tract infection

REACTIONS (9)
  - Gastritis bacterial [Recovered/Resolved]
  - Gastritis [Unknown]
  - Urinary tract infection pseudomonal [Recovered/Resolved]
  - Abdominal pain [Recovered/Resolved]
  - Pathogen resistance [Unknown]
  - Pseudomonas infection [Recovered/Resolved]
  - Vomiting [Recovered/Resolved]
  - Diarrhoea [Recovered/Resolved]
  - Multiple-drug resistance [Unknown]

NARRATIVE: CASE EVENT DATE: 20150302
